FAERS Safety Report 10108555 (Version 1)
Quarter: 2014Q2

REPORT INFORMATION
  Report Type: Spontaneous
  Country: US (occurrence: US)
  Receive Date: 20140425
  Receipt Date: 20140425
  Transmission Date: 20141212
  Serious: No
  Sender: FDA-Public Use
  Company Number: US-009507513-1404USA008246

PATIENT
  Sex: Female

DRUGS (1)
  1. ASMANEX TWISTHALER [Suspect]
     Dosage: STRENGTH-220 MCG 1 STANDARD DOSE OF 120,FREQUENCY-1PUFF TWICE A DAY.
     Dates: start: 20140409

REACTIONS (2)
  - Drug dose omission [Unknown]
  - Product quality issue [Unknown]
